FAERS Safety Report 7047109-4 (Version None)
Quarter: 2010Q4

REPORT INFORMATION
  Report Type: 
  Country: None (occurrence: None)
  Receive Date: 20101015
  Receipt Date: 20101012
  Transmission Date: 20110411
  Serious: Yes (Death)
  Sender: FDA-Public Use
  Company Number: CZ-JNJFOC-20101003587

PATIENT
  Sex: Male

DRUGS (2)
  1. RISPERDAL CONSTA [Suspect]
     Indication: SCHIZOPHRENIA, PARANOID TYPE
     Route: 030
  2. LITHIUM [Suspect]
     Indication: SCHIZOPHRENIA, PARANOID TYPE
     Route: 048

REACTIONS (1)
  - SUDDEN DEATH [None]
